FAERS Safety Report 18321831 (Version 1)
Quarter: 2020Q3

REPORT INFORMATION
  Report Type: Spontaneous
  Country: US (occurrence: US)
  Receive Date: 20200929
  Receipt Date: 20200929
  Transmission Date: 20201103
  Serious: No
  Sender: FDA-Public Use
  Company Number: US-ASTRAZENECA-2020SF21723

PATIENT
  Sex: Female
  Weight: 68.9 kg

DRUGS (6)
  1. NEXIUM [Suspect]
     Active Substance: ESOMEPRAZOLE MAGNESIUM
     Indication: GASTROOESOPHAGEAL REFLUX DISEASE
     Route: 048
     Dates: start: 1994
  2. METOPROLOL. [Suspect]
     Active Substance: METOPROLOL
     Route: 065
  3. PRAVASTATIN. [Concomitant]
     Active Substance: PRAVASTATIN
  4. ASPIRIN. [Concomitant]
     Active Substance: ASPIRIN
     Dosage: DAILY
  5. LOSARTAN. [Concomitant]
     Active Substance: LOSARTAN
  6. CALCIUM WITH B?12 [Concomitant]
     Dosage: DAILY

REACTIONS (4)
  - Osteoporosis [Unknown]
  - Vitamin B12 deficiency [Unknown]
  - Gastric disorder [Unknown]
  - Pain [Not Recovered/Not Resolved]
